FAERS Safety Report 6333345-9 (Version None)
Quarter: 2009Q3

REPORT INFORMATION
  Report Type: 
  Country: None (occurrence: None)
  Receive Date: 20090828
  Receipt Date: 20090522
  Transmission Date: 20100115
  Serious: No
  Sender: FDA-Public Use
  Company Number: A0785876A

PATIENT
  Age: 62 Year
  Sex: Female

DRUGS (7)
  1. BECONASE [Suspect]
     Route: 045
     Dates: start: 20020101
  2. SINGULAIR [Concomitant]
  3. AZMACORT [Concomitant]
  4. SECTRAL [Concomitant]
  5. CORTISOL [Concomitant]
  6. NEXIUM [Concomitant]
  7. LIMBREL [Concomitant]

REACTIONS (2)
  - DRUG INEFFECTIVE [None]
  - PRODUCT QUALITY ISSUE [None]
